FAERS Safety Report 5930183-3 (Version None)
Quarter: 2008Q4

REPORT INFORMATION
  Report Type: 
  Country: None (occurrence: None)
  Receive Date: 20081024
  Receipt Date: 20081014
  Transmission Date: 20090506
  Serious: Yes (Other)
  Sender: FDA-Public Use
  Company Number: GR-PFIZER INC-2008086934

PATIENT
  Sex: Female

DRUGS (3)
  1. ZOLOFT [Suspect]
     Dates: start: 20080401, end: 20080501
  2. ANTI-DIABETICS [Concomitant]
  3. THYROID HORMONES [Concomitant]

REACTIONS (1)
  - NEUROLEPTIC MALIGNANT SYNDROME [None]
